FAERS Safety Report 19869323 (Version 1)
Quarter: 2021Q3

REPORT INFORMATION
  Report Type: Spontaneous
  Country: US (occurrence: US)
  Receive Date: 20210922
  Receipt Date: 20210922
  Transmission Date: 20211014
  Serious: Yes (Other)
  Sender: FDA-Public Use
  Company Number: US-ASTRAZENECA-2021A728365

PATIENT
  Age: 64 Year
  Sex: Female

DRUGS (2)
  1. TAGRISSO [Suspect]
     Active Substance: OSIMERTINIB
     Indication: LUNG DIFFUSION DISORDER
     Route: 048
     Dates: start: 202007
  2. TAGRISSO [Suspect]
     Active Substance: OSIMERTINIB
     Indication: LUNG DIFFUSION DISORDER
     Route: 048

REACTIONS (2)
  - Blood creatinine increased [Unknown]
  - Glomerular filtration rate decreased [Unknown]
